FAERS Safety Report 5145155-9 (Version None)
Quarter: 2006Q4

REPORT INFORMATION
  Report Type: 
  Country: None (occurrence: None)
  Receive Date: 20061107
  Receipt Date: 20061031
  Transmission Date: 20070319
  Serious: Yes (Other)
  Sender: FDA-Public Use
  Company Number: 2006UW20918

PATIENT
  Age: 76 Year
  Sex: Female

DRUGS (12)
  1. ATACAND [Suspect]
     Route: 048
  2. LISINOPRIL [Suspect]
     Route: 048
  3. HYDROCHLOROTHIAZIDE [Suspect]
  4. CITALOPRAM HYDROBROMIDE [Suspect]
  5. SIMVASTATIN [Suspect]
  6. SOTALOL HYDROCHLORIDE [Suspect]
  7. SPIRONOLACTONE [Suspect]
  8. TERAZOSIN HCL [Suspect]
  9. ZOPICTONE [Suspect]
  10. ASPIRIN [Concomitant]
  11. EPREX [Concomitant]
  12. VAGIFEM [Concomitant]

REACTIONS (8)
  - BLOOD CREATININE INCREASED [None]
  - BLOOD UREA INCREASED [None]
  - BRADYCARDIA [None]
  - DIZZINESS [None]
  - HYPOTENSION [None]
  - HYPOVOLAEMIA [None]
  - MUSCULAR WEAKNESS [None]
  - RENAL FAILURE ACUTE [None]
